FAERS Safety Report 8322161-4 (Version None)
Quarter: 2012Q2

REPORT INFORMATION
  Report Type: 
  Country: None (occurrence: None)
  Receive Date: 20120430
  Receipt Date: 20100105
  Transmission Date: 20120825
  Serious: No
  Sender: FDA-Public Use
  Company Number: US-TEVA-2010000055

PATIENT
  Sex: Male
  Weight: 145.28 kg

DRUGS (10)
  1. NUVIGIL [Suspect]
     Indication: SLEEP APNOEA SYNDROME
     Dosage: 75 MILLIGRAM;
     Route: 048
     Dates: start: 20091001, end: 20091201
  2. NODOZ [Concomitant]
     Dates: start: 20060101
  3. NORVASC [Concomitant]
     Dates: start: 19940101
  4. ADDERALL 5 [Concomitant]
     Dates: start: 19990101
  5. PROZAC [Concomitant]
     Dates: start: 19580101
  6. MICARDIS [Concomitant]
  7. HYTRIN [Concomitant]
     Dates: start: 19940101
  8. NUVIGIL [Suspect]
     Indication: NARCOLEPSY
     Dosage: 125 MILLIGRAM;
     Route: 048
     Dates: start: 20091201
  9. RITALIN [Concomitant]
     Dates: start: 19580101
  10. LOPRESSOR [Concomitant]
     Dates: start: 19940101

REACTIONS (2)
  - DRUG INEFFECTIVE [None]
  - THERAPEUTIC RESPONSE UNEXPECTED [None]
